FAERS Safety Report 9813496 (Version 1)
Quarter: 2014Q1

REPORT INFORMATION
  Report Type: Spontaneous
  Country: US (occurrence: None)
  Receive Date: 20140110
  Receipt Date: 20140110
  Transmission Date: 20141002
  Serious: Yes (Other)
  Sender: FDA-Public Use
  Company Number: None

PATIENT
  Age: 61 Year
  Sex: Female

DRUGS (19)
  1. AZITHROMYCIN [Concomitant]
  2. WELBUTRIN [Concomitant]
  3. AMITRIPTYLINE [Concomitant]
  4. FLUCONAZOLE [Concomitant]
  5. TRAZODONE [Concomitant]
  6. ROPINIROLE [Concomitant]
  7. WASFARIN [Concomitant]
  8. HYDROCHLOROTHIAZIDE [Concomitant]
  9. B COMPLEX [Concomitant]
  10. MUCINEX [Concomitant]
  11. EGRIFTA [Suspect]
     Indication: LIPODYSTROPHY ACQUIRED
     Route: 058
     Dates: start: 20130725
  12. SENTRESS [Concomitant]
  13. OMEPRAZOLE [Concomitant]
  14. METFORMIN [Concomitant]
  15. METOPROLOL [Concomitant]
  16. GABAPENTIN [Concomitant]
  17. NYTROGLYCER [Concomitant]
  18. ASPIRIN [Concomitant]
  19. ZOLPIDEM [Concomitant]

REACTIONS (4)
  - Dry mouth [None]
  - Blood glucose increased [None]
  - Night sweats [None]
  - Tremor [None]
